FAERS Safety Report 10208148 (Version 1)
Quarter: 2014Q2

REPORT INFORMATION
  Report Type: Report from Study
  Country: US (occurrence: US)
  Receive Date: 20140530
  Receipt Date: 20140530
  Transmission Date: 20141212
  Serious: Yes (Hospitalization)
  Sender: FDA-Public Use
  Company Number: US-SA-2014SA065792

PATIENT
  Sex: Male

DRUGS (1)
  1. LANTUS [Suspect]
     Indication: DIABETES MELLITUS
     Dosage: DOSE: LESS THAN 35 UNITS A DAY
     Route: 065

REACTIONS (3)
  - Neck pain [Unknown]
  - Asthenia [Unknown]
  - Underdose [Unknown]
